FAERS Safety Report 5423031-1 (Version None)
Quarter: 2007Q3

REPORT INFORMATION
  Report Type: 
  Country: None (occurrence: None)
  Receive Date: 20070822
  Receipt Date: 20070810
  Transmission Date: 20080115
  Serious: Yes (Other)
  Sender: FDA-Public Use
  Company Number: IN-PFIZER INC-2007067398

PATIENT
  Age: 45 Year
  Sex: Female

DRUGS (1)
  1. DALACIN [Suspect]
     Indication: CRUSH INJURY
     Route: 042
     Dates: start: 20070806, end: 20070806

REACTIONS (2)
  - ANGIOEDEMA [None]
  - VASCULAR INSUFFICIENCY [None]
